FAERS Safety Report 14528116 (Version 2)
Quarter: 2018Q1

REPORT INFORMATION
  Report Type: Spontaneous
  Country: BR (occurrence: BR)
  Receive Date: 20180213
  Receipt Date: 20180305
  Transmission Date: 20180509
  Serious: Yes (Death)
  Sender: FDA-Public Use
  Company Number: BR-ROCHE-2067279

PATIENT
  Age: 75 Year
  Sex: Male
  Weight: 61 kg

DRUGS (6)
  1. XELODA [Suspect]
     Active Substance: CAPECITABINE
     Indication: METASTASES TO LIVER
  2. XELODA [Suspect]
     Active Substance: CAPECITABINE
     Indication: COLORECTAL CANCER
     Dosage: CONTINUOUSLY FOR 2 YEARS
     Route: 048
     Dates: start: 201503, end: 201708
  3. CLEXANE [Suspect]
     Active Substance: ENOXAPARIN SODIUM
     Indication: DEEP VEIN THROMBOSIS
     Route: 058
     Dates: start: 20160824
  4. LOSARTAN POTASSIUM. [Concomitant]
     Active Substance: LOSARTAN POTASSIUM
     Indication: HYPERTENSION
     Route: 048
  5. XELODA [Suspect]
     Active Substance: CAPECITABINE
     Indication: METASTASES TO LUNG
  6. ELOXATIN [Suspect]
     Active Substance: OXALIPLATIN
     Indication: PRODUCT USED FOR UNKNOWN INDICATION
     Route: 042

REACTIONS (8)
  - Weight decreased [Unknown]
  - Dehydration [Unknown]
  - Peripheral swelling [Unknown]
  - Incorrect route of drug administration [Fatal]
  - Fluid retention [Unknown]
  - Blood creatinine abnormal [Unknown]
  - Haemorrhage [Fatal]
  - Fibrin D dimer increased [Unknown]

NARRATIVE: CASE EVENT DATE: 20160824
